FAERS Safety Report 15493834 (Version 5)
Quarter: 2019Q3

REPORT INFORMATION
  Report Type: Report from Study
  Country: DE (occurrence: DE)
  Receive Date: 20181012
  Receipt Date: 20190906
  Transmission Date: 20191004
  Serious: Yes (Other)
  Sender: FDA-Public Use
  Company Number: PHHY2015DE005715

PATIENT
  Age: 9 Year
  Sex: Female

DRUGS (3)
  1. GILENYA [Suspect]
     Active Substance: FINGOLIMOD HYDROCHLORIDE
     Dosage: UNK, QD
     Route: 048
     Dates: start: 20180720
  2. METHYLPREDISOLONE [Concomitant]
     Active Substance: METHYLPREDNISOLONE
     Indication: PRODUCT USED FOR UNKNOWN INDICATION
     Dosage: 1000 MG, UNK
     Route: 065
     Dates: start: 20150708, end: 20150710
  3. GILENYA [Suspect]
     Active Substance: FINGOLIMOD HYDROCHLORIDE
     Indication: MULTIPLE SCLEROSIS
     Dosage: QD
     Route: 048
     Dates: start: 20140821, end: 201803

REACTIONS (24)
  - Lymphocyte count decreased [Recovering/Resolving]
  - High density lipoprotein increased [Unknown]
  - Insomnia [Recovered/Resolved]
  - Product use issue [Unknown]
  - Weight decreased [Unknown]
  - Alanine aminotransferase increased [Unknown]
  - Headache [Recovered/Resolved]
  - Migraine [Recovered/Resolved]
  - Blood cholesterol increased [Unknown]
  - White blood cell count decreased [Unknown]
  - Nasopharyngitis [Recovered/Resolved]
  - Nasopharyngitis [Unknown]
  - Amenorrhoea [Unknown]
  - Blood bilirubin increased [Unknown]
  - Vitamin D deficiency [Unknown]
  - Tachycardia [Recovered/Resolved]
  - Headache [Recovered/Resolved]
  - Macular cyst [Recovered/Resolved]
  - Multiple sclerosis relapse [Recovered/Resolved]
  - Influenza [Unknown]
  - Tinea capitis [Recovered/Resolved]
  - Flatulence [Unknown]
  - Campylobacter infection [Recovered/Resolved]
  - Alopecia [Unknown]

NARRATIVE: CASE EVENT DATE: 20140901
